FAERS Safety Report 7542872-8 (Version None)
Quarter: 2011Q2

REPORT INFORMATION
  Report Type: 
  Country: None (occurrence: None)
  Receive Date: 20110613
  Receipt Date: 20110601
  Transmission Date: 20111010
  Serious: Yes (Death, Life-Threatening, Hospitalization, Other)
  Sender: FDA-Public Use
  Company Number: JP-CELGENEUS-087-21880-11020211

PATIENT
  Sex: Male

DRUGS (18)
  1. ADALAT CC [Concomitant]
     Indication: HYPERTENSION
     Dosage: 20 MILLIGRAM
     Route: 048
     Dates: start: 20101012, end: 20101109
  2. THERADIA [Concomitant]
     Route: 062
     Dates: start: 20101206, end: 20101215
  3. LAXOBERON [Concomitant]
     Dosage: 5-10 DROPS
     Route: 048
     Dates: start: 20101030, end: 20101112
  4. CONIEL [Concomitant]
     Indication: HYPERTENSION
     Dosage: 4 MILLIGRAM
     Route: 048
     Dates: start: 20101213, end: 20110131
  5. ZOLPIDEM [Concomitant]
     Dosage: 10 MILLIGRAM
     Route: 048
     Dates: start: 20101110, end: 20101121
  6. REVLIMID [Suspect]
     Indication: MULTIPLE MYELOMA
     Dosage: 10 MILLIGRAM
     Route: 048
     Dates: start: 20101109, end: 20101129
  7. DEXAMETHASONE [Suspect]
     Indication: MULTIPLE MYELOMA
     Dosage: 20 MILLIGRAM
     Route: 048
     Dates: start: 20101109, end: 20101129
  8. ASPIRIN [Concomitant]
     Indication: PROPHYLAXIS
     Dosage: 100 MILLIGRAM
     Route: 048
     Dates: start: 20101109, end: 20101202
  9. RISUMIC [Concomitant]
     Dosage: 30 MILLIGRAM
     Route: 048
     Dates: start: 20100914, end: 20101202
  10. LASIX [Concomitant]
     Dosage: 20 MILLIGRAM
     Route: 051
     Dates: start: 20101129, end: 20101211
  11. MUCOSTA [Concomitant]
     Indication: PROPHYLAXIS
     Dosage: 300 MILLIGRAM
     Route: 048
     Dates: start: 20101102, end: 20101218
  12. AMARYL [Concomitant]
     Indication: DIABETES MELLITUS
     Dosage: .5 MILLIGRAM
     Route: 048
     Dates: start: 20101115, end: 20101120
  13. DIFLUCAN [Concomitant]
     Indication: PROPHYLAXIS
     Dosage: 100 MILLIGRAM
     Route: 048
     Dates: start: 20100902, end: 20101218
  14. GASMOTIN [Concomitant]
     Indication: PROPHYLAXIS
     Dosage: 15 MILLIGRAM
     Route: 048
     Dates: start: 20101030, end: 20110122
  15. LANSOPRAZOLE [Concomitant]
     Indication: PROPHYLAXIS
     Dosage: 15 MILLIGRAM
     Route: 048
     Dates: start: 20101109, end: 20110122
  16. LENDORMIN [Concomitant]
     Dosage: .25 MILLIGRAM
     Route: 048
     Dates: start: 20101122, end: 20101216
  17. PURSENID [Concomitant]
     Dosage: 12 MILLIGRAM
     Route: 048
     Dates: start: 20101113, end: 20110108
  18. SULFAMETHOXAZOLE [Concomitant]
     Indication: PROPHYLAXIS
     Dosage: 1 TABLET
     Route: 048
     Dates: start: 20101129, end: 20101213

REACTIONS (7)
  - PNEUMONIA [None]
  - RENAL FAILURE ACUTE [None]
  - PLATELET COUNT DECREASED [None]
  - HERPES ZOSTER [None]
  - HAEMOGLOBIN DECREASED [None]
  - STRESS CARDIOMYOPATHY [None]
  - STOMATITIS [None]
